FAERS Safety Report 17096954 (Version 1)
Quarter: 2019Q4

REPORT INFORMATION
  Report Type: Spontaneous
  Country: US (occurrence: US)
  Receive Date: 20191104
  Receipt Date: 20191104
  Transmission Date: 20200122
  Serious: No
  Sender: FDA-Public Use
  Company Number: None

PATIENT
  Sex: Male

DRUGS (10)
  1. FINASTERIDE. [Concomitant]
     Active Substance: FINASTERIDE
  2. SAW PALMETTO [Concomitant]
     Active Substance: HERBALS\SAW PALMETTO
  3. TESTOT [Concomitant]
  4. AZITHROMYCIN ANHYDROUS. [Concomitant]
     Active Substance: AZITHROMYCIN ANHYDROUS
  5. LOSARTAN. [Concomitant]
     Active Substance: LOSARTAN
  6. BENZONATATE. [Concomitant]
     Active Substance: BENZONATATE
  7. POTASSIUM [Concomitant]
     Active Substance: POTASSIUM
  8. HUMIRA [Suspect]
     Active Substance: ADALIMUMAB
     Indication: PSORIATIC ARTHROPATHY
     Route: 048
     Dates: start: 20180224
  9. ALLUPURINOL [Concomitant]
  10. TAMSULOSIN [Concomitant]
     Active Substance: TAMSULOSIN

REACTIONS (3)
  - Product dose omission [None]
  - Bronchitis [None]
  - Irritable bowel syndrome [None]
